FAERS Safety Report 23532594 (Version 3)
Quarter: 2024Q2

REPORT INFORMATION
  Report Type: Spontaneous
  Country: US (occurrence: US)
  Receive Date: 20240216
  Receipt Date: 20240404
  Transmission Date: 20240716
  Serious: Yes (Hospitalization, Other)
  Sender: FDA-Public Use
  Company Number: US-009507513-2402USA005330

PATIENT
  Age: 69 Year
  Sex: Female
  Weight: 186 kg

DRUGS (18)
  1. KEYTRUDA [Suspect]
     Active Substance: PEMBROLIZUMAB
     Indication: Endometrial cancer recurrent
     Dosage: 200 MILLIGRAM, Q3W
     Route: 042
     Dates: start: 20231121, end: 20231128
  2. LENVATINIB MESYLATE [Suspect]
     Active Substance: LENVATINIB MESYLATE
     Indication: Endometrial cancer recurrent
     Dosage: 20 MILLIGRAM
     Route: 048
     Dates: start: 20231120, end: 20231221
  3. BACTRIM [Suspect]
     Active Substance: SULFAMETHOXAZOLE\TRIMETHOPRIM
  4. METOPROLOL [Suspect]
     Active Substance: METOPROLOL
  5. PROVENTIL HFA [SALBUTAMOL] [Concomitant]
     Indication: Wheezing
     Dosage: 1 PUFF INTO THE LUNG EVERY 6 HOURS
     Dates: start: 20221028
  6. PROVENTIL HFA [SALBUTAMOL] [Concomitant]
     Indication: Dyspnoea
  7. ELIQUIS [Concomitant]
     Active Substance: APIXABAN
     Indication: Deep vein thrombosis
     Dosage: 1 TABLET (5 MG TOTAL)
     Route: 048
  8. MEPRON [Concomitant]
     Active Substance: ATOVAQUONE
     Dosage: 10 MILLILITER, QD
     Route: 048
     Dates: start: 20240111, end: 20240220
  9. EPINEPHRINE [Concomitant]
     Active Substance: EPINEPHRINE
     Indication: Anaphylactic reaction
     Dosage: 0.3 MILLILITER, ONCE AS NEEDED
     Route: 030
     Dates: start: 20210607
  10. EPINEPHRINE [Concomitant]
     Active Substance: EPINEPHRINE
     Indication: Hypersensitivity
  11. ADVAIR HFA [Concomitant]
     Active Substance: FLUTICASONE PROPIONATE\SALMETEROL XINAFOATE
     Dosage: 1 PUFF, INTO THE LUNG 2 TIMES DAILY AS NEEDED
  12. HEPARIN SODIUM, PORCINE [Concomitant]
     Active Substance: HEPARIN SODIUM
     Indication: Prophylaxis
     Dosage: STRENGTH: 100 UNIT/ML
     Route: 042
  13. GLUCOPHAGE [Concomitant]
     Active Substance: METFORMIN HYDROCHLORIDE
     Dosage: TAKE 0.5 TABLETS (250 MG TOTAL) BY MOUTH 2 TIMES DAILY (WITH MEALS)
     Route: 048
     Dates: start: 20231114
  14. TOPROL XL [Concomitant]
     Active Substance: METOPROLOL SUCCINATE
     Dosage: TAKE 0.5 TABLETS (25 MG TOTAL) BY MOUTH DAILY
     Route: 048
  15. SODIUM CHLORIDE [Concomitant]
     Active Substance: SODIUM CHLORIDE
     Dosage: 10 MILLILITER, PRN
     Route: 042
     Dates: start: 20230424
  16. SODIUM CHLORIDE [Concomitant]
     Active Substance: SODIUM CHLORIDE
     Dosage: 20 MILLILITER
     Route: 042
  17. DEXTROSE [Concomitant]
     Active Substance: DEXTROSE\DEXTROSE MONOHYDRATE
     Indication: Pain
     Dosage: UNK, QD
  18. SYNTHROID [Concomitant]
     Active Substance: LEVOTHYROXINE SODIUM
     Dosage: TAKE 1 TABLET, EVERY MORNING
     Route: 048
     Dates: start: 20230414

REACTIONS (21)
  - Drug-induced liver injury [Recovered/Resolved]
  - Atrial fibrillation [Unknown]
  - Thrombocytopenia [Unknown]
  - Immune-mediated hyperthyroidism [Unknown]
  - Skull fracture [Unknown]
  - Haemorrhage intracranial [Unknown]
  - Intracranial haemangioma [Unknown]
  - Failure to thrive [Unknown]
  - Hypotension [Unknown]
  - Fall [Unknown]
  - Pain [Unknown]
  - Hyperglycaemia [Unknown]
  - Dysphagia [Unknown]
  - Muscular weakness [Unknown]
  - Urine analysis abnormal [Unknown]
  - Blood potassium decreased [Unknown]
  - Blood urea increased [Unknown]
  - Blood creatinine decreased [Unknown]
  - Rash [Unknown]
  - Arachnoid cyst [Unknown]
  - Empty sella syndrome [Unknown]

NARRATIVE: CASE EVENT DATE: 20231221
